FAERS Safety Report 5808229-2 (Version None)
Quarter: 2008Q3

REPORT INFORMATION
  Report Type: 
  Country: None (occurrence: None)
  Receive Date: 20080709
  Receipt Date: 20080626
  Transmission Date: 20090109
  Serious: Yes (Hospitalization)
  Sender: FDA-Public Use
  Company Number: 14604

PATIENT
  Age: 70 Year
  Sex: Female

DRUGS (2)
  1. MORPHINE SULFATE [Suspect]
     Indication: ARTHRALGIA
     Dosage: 60 MG BID ORALLY
     Route: 048
     Dates: start: 20080101
  2. MORPHINE SULFATE [Suspect]
     Indication: BACK PAIN
     Dosage: 60 MG BID ORALLY
     Route: 048
     Dates: start: 20080101

REACTIONS (4)
  - ASTHENIA [None]
  - HYPOTENSION [None]
  - PHARMACEUTICAL PRODUCT COMPLAINT [None]
  - RESPIRATORY DISORDER [None]
